FAERS Safety Report 15090250 (Version 1)
Quarter: 2018Q2

REPORT INFORMATION
  Report Type: Spontaneous
  Country: US (occurrence: US)
  Receive Date: 20180608
  Receipt Date: 20180608
  Transmission Date: 20180711
  Serious: No
  Sender: FDA-Public Use
  Company Number: None

PATIENT
  Age: 13 Year
  Sex: Female
  Weight: 54 kg

DRUGS (1)
  1. CONERTA GENERIC 27 MG METHYLPHENIDATE HCL ER 27 MG TAB [Suspect]
     Active Substance: METHYLPHENIDATE HYDROCHLORIDE
     Indication: ATTENTION DEFICIT/HYPERACTIVITY DISORDER
     Dosage: ?          QUANTITY:30 TABLET(S);?
     Route: 048

REACTIONS (6)
  - Impulsive behaviour [None]
  - Product quality issue [None]
  - Product formulation issue [None]
  - Product substitution issue [None]
  - Therapeutic response changed [None]
  - Educational problem [None]

NARRATIVE: CASE EVENT DATE: 20180515
